FAERS Safety Report 16988361 (Version 1)
Quarter: 2019Q4

REPORT INFORMATION
  Report Type: Spontaneous
  Country: US (occurrence: US)
  Receive Date: 20191104
  Receipt Date: 20191104
  Transmission Date: 20200122
  Serious: No
  Sender: FDA-Public Use
  Company Number: US-BAYER-2019-197637

PATIENT
  Age: 54 Year
  Sex: Male
  Weight: 104 kg

DRUGS (1)
  1. MIRALAX [Suspect]
     Active Substance: POLYETHYLENE GLYCOL 3350
     Indication: GASTROINTESTINAL DISORDER
     Route: 048
     Dates: start: 2018

REACTIONS (5)
  - Drug ineffective [Unknown]
  - Back pain [Recovered/Resolved]
  - Frequent bowel movements [Recovered/Resolved]
  - Pain in extremity [Recovered/Resolved]
  - Incorrect dose administered [Unknown]
